FAERS Safety Report 24814774 (Version 3)
Quarter: 2025Q1

REPORT INFORMATION
  Report Type: Spontaneous
  Country: US (occurrence: None)
  Receive Date: 20250107
  Receipt Date: 20250306
  Transmission Date: 20250409
  Serious: Yes (Death, Hospitalization, Other)
  Sender: INCYTE
  Company Number: US-INCYTE CORPORATION-2025IN000044

PATIENT
  Age: 75 Year
  Weight: 113.4 kg

DRUGS (12)
  1. JAKAFI [Suspect]
     Active Substance: RUXOLITINIB
     Indication: Chronic graft versus host disease in lung
     Route: 065
  2. JAKAFI [Suspect]
     Active Substance: RUXOLITINIB
     Indication: Chronic graft versus host disease oral
  3. JAKAFI [Suspect]
     Active Substance: RUXOLITINIB
     Indication: Chronic graft versus host disease in eye
  4. AXATILIMAB [Concomitant]
     Active Substance: AXATILIMAB
     Indication: Chronic graft versus host disease in lung
  5. AXATILIMAB [Concomitant]
     Active Substance: AXATILIMAB
     Indication: Chronic graft versus host disease oral
  6. AXATILIMAB [Concomitant]
     Active Substance: AXATILIMAB
     Indication: Chronic graft versus host disease in eye
  7. REZUROCK [Concomitant]
     Active Substance: BELUMOSUDIL
     Indication: Chronic graft versus host disease in lung
     Route: 065
  8. REZUROCK [Concomitant]
     Active Substance: BELUMOSUDIL
     Indication: Chronic graft versus host disease oral
  9. REZUROCK [Concomitant]
     Active Substance: BELUMOSUDIL
     Indication: Chronic graft versus host disease in eye
  10. PREDNISONE [Concomitant]
     Active Substance: PREDNISONE
     Indication: Chronic graft versus host disease in lung
     Route: 065
  11. PREDNISONE [Concomitant]
     Active Substance: PREDNISONE
     Indication: Chronic graft versus host disease oral
  12. PREDNISONE [Concomitant]
     Active Substance: PREDNISONE
     Indication: Chronic graft versus host disease in eye

REACTIONS (9)
  - Respiratory failure [Fatal]
  - Bronchiolitis obliterans syndrome [Unknown]
  - Delirium [Unknown]
  - Deep vein thrombosis [Unknown]
  - Dyspnoea [Recovered/Resolved]
  - Decreased activity [Unknown]
  - Tracheobronchitis [Unknown]
  - Diastolic dysfunction [Unknown]
  - Ejection fraction abnormal [Unknown]
